FAERS Safety Report 5319535-2 (Version None)
Quarter: 2007Q2

REPORT INFORMATION
  Report Type: 
  Country: None (occurrence: None)
  Receive Date: 20070508
  Receipt Date: 20070427
  Transmission Date: 20071010
  Serious: Yes (Life-Threatening, Hospitalization)
  Sender: FDA-Public Use
  Company Number: CH-PFIZER INC-2007033907

PATIENT
  Age: 22 Year
  Sex: Female

DRUGS (5)
  1. ALDACTONE [Suspect]
     Indication: ACNE
     Route: 048
     Dates: start: 20070101, end: 20070326
  2. ISOTRETINOIN [Concomitant]
     Indication: ACNE
  3. SURMONTIL [Concomitant]
     Dosage: DAILY DOSE:200MG-FREQ:DAILY
  4. ABILIFY [Concomitant]
     Dosage: DAILY DOSE:15MG-FREQ:DAILY
     Route: 048
  5. ENTUMIN [Concomitant]

REACTIONS (3)
  - HYPONATRAEMIA [None]
  - OFF LABEL USE [None]
  - RENAL FAILURE ACUTE [None]
